FAERS Safety Report 12727750 (Version 1)
Quarter: 2016Q3

REPORT INFORMATION
  Report Type: Spontaneous
  Country: ID (occurrence: ID)
  Receive Date: 20160909
  Receipt Date: 20160909
  Transmission Date: 20161109
  Serious: Yes (Hospitalization)
  Sender: FDA-Public Use
  Company Number: ID-BAYER-2016-171570

PATIENT
  Age: 35 Year
  Sex: Male

DRUGS (8)
  1. DACARBAZINE. [Suspect]
     Active Substance: DACARBAZINE
     Indication: METASTASES TO LUNG
  2. DOXORUBICIN [Suspect]
     Active Substance: DOXORUBICIN
     Indication: RHABDOMYOSARCOMA
     Dosage: UNK
  3. IFOSFAMIDE. [Suspect]
     Active Substance: IFOSFAMIDE
     Indication: METASTASES TO LUNG
  4. DOXORUBICIN [Suspect]
     Active Substance: DOXORUBICIN
     Indication: METASTASES TO LUNG
  5. IFOSFAMIDE. [Suspect]
     Active Substance: IFOSFAMIDE
     Indication: RHABDOMYOSARCOMA
     Dosage: UNK
  6. MESNA. [Suspect]
     Active Substance: MESNA
     Indication: RHABDOMYOSARCOMA
     Dosage: UNK
  7. DACARBAZINE. [Suspect]
     Active Substance: DACARBAZINE
     Indication: RHABDOMYOSARCOMA
     Dosage: UNK
  8. MESNA. [Suspect]
     Active Substance: MESNA
     Indication: METASTASES TO LUNG

REACTIONS (4)
  - Pneumothorax spontaneous [Recovered/Resolved]
  - Dyspnoea [Recovered/Resolved]
  - Off label use [None]
  - Chest pain [Recovered/Resolved]
